FAERS Safety Report 20007988 (Version 6)
Quarter: 2025Q2

REPORT INFORMATION
  Report Type: Report from Study
  Country: JP (occurrence: JP)
  Receive Date: 20211028
  Receipt Date: 20250606
  Transmission Date: 20250717
  Serious: Yes (Hospitalization, Other)
  Sender: RECORDATI
  Company Number: JP-002147023-NVSJ2020JP001365

PATIENT
  Age: 51 Year
  Sex: Female
  Weight: 56 kg

DRUGS (11)
  1. PASIREOTIDE [Suspect]
     Active Substance: PASIREOTIDE
     Indication: Pituitary-dependent Cushing^s syndrome
     Route: 030
     Dates: start: 20190128
  2. PASIREOTIDE [Suspect]
     Active Substance: PASIREOTIDE
     Route: 030
     Dates: start: 20191021
  3. PASIREOTIDE [Suspect]
     Active Substance: PASIREOTIDE
     Route: 030
     Dates: start: 20191120
  4. PASIREOTIDE [Suspect]
     Active Substance: PASIREOTIDE
     Route: 030
     Dates: start: 20191219
  5. PASIREOTIDE [Suspect]
     Active Substance: PASIREOTIDE
     Route: 030
     Dates: start: 20200116
  6. PASIREOTIDE [Suspect]
     Active Substance: PASIREOTIDE
     Route: 030
     Dates: start: 20200625
  7. PASIREOTIDE [Suspect]
     Active Substance: PASIREOTIDE
     Route: 030
     Dates: start: 20200730
  8. PASIREOTIDE [Suspect]
     Active Substance: PASIREOTIDE
     Route: 030
     Dates: start: 20210616
  9. PASIREOTIDE [Suspect]
     Active Substance: PASIREOTIDE
     Route: 030
     Dates: start: 20210714
  10. PASIREOTIDE [Suspect]
     Active Substance: PASIREOTIDE
     Route: 030
     Dates: start: 20210813, end: 20210813
  11. BETAMETHASONE DIPROPIONATE [Concomitant]
     Active Substance: BETAMETHASONE DIPROPIONATE
     Indication: Psoriasis

REACTIONS (8)
  - Blood pressure increased [Recovering/Resolving]
  - Insomnia [Recovering/Resolving]
  - Toxic skin eruption [Recovering/Resolving]
  - Diabetes mellitus [Recovering/Resolving]
  - Malaise [Recovered/Resolved]
  - Malaise [Unknown]
  - Blood pressure increased [Unknown]
  - Insomnia [Unknown]

NARRATIVE: CASE EVENT DATE: 20190214
